FAERS Safety Report 19626063 (Version 1)
Quarter: 2021Q3

REPORT INFORMATION
  Report Type: Spontaneous
  Country: HR (occurrence: HR)
  Receive Date: 20210729
  Receipt Date: 20210729
  Transmission Date: 20211014
  Serious: Yes (Life-Threatening, Hospitalization, Other)
  Sender: FDA-Public Use
  Company Number: HR-TEVA-2021-HR-1936522

PATIENT
  Age: 48 Year
  Sex: Female
  Weight: 71 kg

DRUGS (1)
  1. PACLITAXEL. [Suspect]
     Active Substance: PACLITAXEL
     Indication: NEOPLASM
     Dosage: PACLITAXEL 145 MG I.V. IN 500 ML F.O. 145MG, ADR IS ADEQUATELY LABELLED: YES
     Route: 042
     Dates: start: 20210701, end: 20210701

REACTIONS (4)
  - Dyspnoea [Not Recovered/Not Resolved]
  - Tachycardia [Not Recovered/Not Resolved]
  - Hypersensitivity [Not Recovered/Not Resolved]
  - Anaphylactic shock [Not Recovered/Not Resolved]

NARRATIVE: CASE EVENT DATE: 20210701
